FAERS Safety Report 6057687-X (Version None)
Quarter: 2009Q1

REPORT INFORMATION
  Report Type: 
  Country: None (occurrence: None)
  Receive Date: 20090129
  Receipt Date: 20080414
  Transmission Date: 20090719
  Serious: No
  Sender: FDA-Public Use
  Company Number: A0722588A

PATIENT
  Age: 47 Year
  Sex: Female

DRUGS (9)
  1. MEPRON [Suspect]
     Indication: LYME DISEASE
     Dosage: 750MG TWICE PER DAY
     Route: 048
     Dates: start: 20080404
  2. SUPPLEMENT VITAMINS [Concomitant]
  3. OMNICEF [Concomitant]
  4. BAXAN [Concomitant]
  5. SEROQUEL [Concomitant]
  6. LEVOXYL [Concomitant]
  7. PRAZSOIN HCL [Concomitant]
  8. LAMICTAL [Concomitant]
  9. KLONOPIN [Concomitant]

REACTIONS (4)
  - ANXIETY [None]
  - ARTHRALGIA [None]
  - CHEST DISCOMFORT [None]
  - HEADACHE [None]
